FAERS Safety Report 21044178 (Version 1)
Quarter: 2022Q3

REPORT INFORMATION
  Report Type: Spontaneous
  Country: CN (occurrence: CN)
  Receive Date: 20220705
  Receipt Date: 20220705
  Transmission Date: 20221027
  Serious: Yes (Other)
  Sender: FDA-Public Use
  Company Number: CN-BAYER-2022A093178

PATIENT
  Age: 78 Year
  Sex: Male
  Weight: 57 kg

DRUGS (3)
  1. ULTRAVIST [Suspect]
     Active Substance: IOPROMIDE
     Indication: Imaging procedure
     Dosage: 12.47 G, ONCE
     Route: 042
     Dates: start: 20220504, end: 20220504
  2. ULTRAVIST [Suspect]
     Active Substance: IOPROMIDE
     Indication: Coronary artery disease
  3. IODIXANOL [Suspect]
     Active Substance: IODIXANOL
     Indication: Imaging procedure
     Dosage: 32 G, ONCE
     Route: 042
     Dates: start: 20220504, end: 20220504

REACTIONS (2)
  - Nephropathy toxic [Recovering/Resolving]
  - Blood creatinine increased [Recovering/Resolving]

NARRATIVE: CASE EVENT DATE: 20220506
